FAERS Safety Report 5313086-7 (Version None)
Quarter: 2007Q1

REPORT INFORMATION
  Report Type: 
  Country: None (occurrence: None)
  Receive Date: 20070201
  Receipt Date: 20061117
  Transmission Date: 20070707
  Serious: No
  Sender: FDA-Public Use
  Company Number: VNL_0299_2006

PATIENT
  Age: 69 Year
  Sex: Male
  Weight: 72.5755 kg

DRUGS (2)
  1. APOKYN [Suspect]
     Indication: PARKINSON'S DISEASE
     Dosage: 0.3 ML PRN SC
     Route: 058
     Dates: start: 20061001
  2. ZEGERID [Concomitant]

REACTIONS (1)
  - INJECTION SITE BRUISING [None]
